FAERS Safety Report 7392245-6 (Version None)
Quarter: 2011Q2

REPORT INFORMATION
  Report Type: 
  Country: None (occurrence: None)
  Receive Date: 20110404
  Receipt Date: 20110325
  Transmission Date: 20111010
  Serious: Yes (Hospitalization)
  Sender: FDA-Public Use
  Company Number: US-MERCK-1103USA00862

PATIENT
  Age: 68 Year
  Sex: Male

DRUGS (28)
  1. ASCORBIC ACID [Concomitant]
     Route: 065
  2. ASTELIN [Concomitant]
     Route: 065
  3. FOLGARD [Concomitant]
     Route: 065
  4. MACRODANTIN [Concomitant]
     Route: 065
  5. ACIDOPHILUS [Concomitant]
     Route: 065
  6. JANUMET [Suspect]
     Route: 048
  7. COLACE [Concomitant]
     Route: 065
  8. FLONASE [Concomitant]
     Route: 065
  9. CRANBERRY [Concomitant]
     Route: 065
  10. SENNA [Concomitant]
     Route: 065
  11. ZOCOR [Concomitant]
     Route: 048
  12. JANUVIA [Suspect]
     Indication: TYPE 2 DIABETES MELLITUS
     Route: 048
     Dates: end: 20100401
  13. JANUVIA [Suspect]
     Route: 048
     Dates: start: 20100901, end: 20110101
  14. LOVAZA [Concomitant]
     Route: 065
  15. LORTAB [Concomitant]
     Route: 065
  16. LYRICA [Concomitant]
     Route: 065
  17. PROTONIX [Concomitant]
     Route: 065
  18. JANUVIA [Suspect]
     Route: 048
     Dates: start: 20110301
  19. JANUMET [Suspect]
     Indication: BLOOD GLUCOSE
     Route: 048
  20. JANUMET [Suspect]
     Route: 048
     Dates: start: 20110101
  21. COUMADIN [Concomitant]
     Route: 065
  22. CYMBALTA [Concomitant]
     Route: 065
  23. OMEGA-3 MARINE TRIGLYCERIDES [Concomitant]
     Route: 065
  24. XANTHOPHYLL [Concomitant]
     Route: 065
  25. METAMUCIL-2 [Concomitant]
     Route: 065
  26. VITAMIN D (UNSPECIFIED) [Concomitant]
     Route: 065
  27. JANUMET [Suspect]
     Route: 048
     Dates: start: 20110302, end: 20110301
  28. VITAMINS (UNSPECIFIED) [Concomitant]
     Route: 065

REACTIONS (8)
  - DRUG INEFFECTIVE [None]
  - DECUBITUS ULCER [None]
  - OSTEOMYELITIS [None]
  - WRONG TECHNIQUE IN DRUG USAGE PROCESS [None]
  - URINARY TRACT INFECTION [None]
  - OVERDOSE [None]
  - ABDOMINAL PAIN [None]
  - INAPPROPRIATE SCHEDULE OF DRUG ADMINISTRATION [None]
